FAERS Safety Report 4992384-0 (Version None)
Quarter: 2006Q1

REPORT INFORMATION
  Report Type: 
  Country: None (occurrence: None)
  Receive Date: 20060315
  Receipt Date: 20050407
  Transmission Date: 20060701
  Serious: Yes (Hospitalization)
  Sender: FDA-Public Use
  Company Number: USA050495163

PATIENT
  Age: 48 Year
  Sex: Male

DRUGS (1)
  1. GEMZAR [Suspect]
     Indication: RENAL CELL CARCINOMA STAGE UNSPECIFIED
     Dates: end: 20050301

REACTIONS (1)
  - HAEMOLYTIC URAEMIC SYNDROME [None]
